FAERS Safety Report 13851506 (Version 1)
Quarter: 2017Q3

REPORT INFORMATION
  Report Type: Spontaneous
  Country: IT (occurrence: IT)
  Receive Date: 20170809
  Receipt Date: 20170809
  Transmission Date: 20171127
  Serious: Yes (Other)
  Sender: FDA-Public Use
  Company Number: IT-TEVA-793525ACC

PATIENT
  Age: 59 Year
  Sex: Female

DRUGS (1)
  1. LORAZEPAM DOROM [Suspect]
     Active Substance: LORAZEPAM
     Indication: INSOMNIA
     Dates: start: 2016, end: 2016

REACTIONS (2)
  - Peroneal nerve palsy [Unknown]
  - Motor dysfunction [Unknown]
